FAERS Safety Report 17660284 (Version 5)
Quarter: 2020Q3

REPORT INFORMATION
  Report Type: Spontaneous
  Country: US (occurrence: US)
  Receive Date: 20200413
  Receipt Date: 20200717
  Transmission Date: 20201102
  Serious: No
  Sender: FDA-Public Use
  Company Number: US-PFIZER INC-2018295666

PATIENT
  Age: 64 Year
  Sex: Male
  Weight: 71.67 kg

DRUGS (6)
  1. EUCRISA [Suspect]
     Active Substance: CRISABOROLE
     Indication: ECZEMA
     Dosage: UNK, 1X/DAY(AFTER THE MORNING SHOWER)
  2. EUCRISA [Suspect]
     Active Substance: CRISABOROLE
     Indication: RASH
     Dosage: UNK
  3. EUCRISA [Suspect]
     Active Substance: CRISABOROLE
     Dosage: UNK
  4. EUCRISA [Suspect]
     Active Substance: CRISABOROLE
     Dosage: 2 %, AS NEEDED,[APPLY TO EARS PRN (AS NEEDED)]
  5. EUCRISA [Suspect]
     Active Substance: CRISABOROLE
     Dosage: UNK, 2X/DAY (APPLY TO AFFECTED AREA)
  6. EUCRISA [Suspect]
     Active Substance: CRISABOROLE
     Indication: DERMATITIS CONTACT
     Dosage: UNK

REACTIONS (5)
  - Pruritus [Unknown]
  - Condition aggravated [Unknown]
  - Skin ulcer [Recovered/Resolved]
  - Skin irritation [Unknown]
  - Intentional product misuse [Unknown]
